FAERS Safety Report 5176377-9 (Version None)
Quarter: 2006Q4

REPORT INFORMATION
  Report Type: 
  Country: None (occurrence: None)
  Receive Date: 20061215
  Receipt Date: 20061207
  Transmission Date: 20070319
  Serious: Yes (Death, Hospitalization)
  Sender: FDA-Public Use
  Company Number: BE-AMGEN-UK202832

PATIENT
  Sex: Female
  Weight: 61 kg

DRUGS (7)
  1. MIMPARA [Suspect]
     Indication: HYPERPARATHYROIDISM SECONDARY
     Route: 048
     Dates: start: 20060706, end: 20061007
  2. ZANTAC [Concomitant]
     Route: 048
  3. ASAFLOW [Concomitant]
     Route: 048
  4. NITROGLYCERIN [Concomitant]
  5. RENAGEL [Concomitant]
     Route: 048
  6. TRAMADOL HCL [Concomitant]
     Route: 048
  7. DUPHALAC [Concomitant]
     Route: 048

REACTIONS (4)
  - EATING DISORDER [None]
  - GASTROINTESTINAL OBSTRUCTION [None]
  - HYPERCALCAEMIA [None]
  - INFARCTION [None]
